FAERS Safety Report 6636370-3 (Version None)
Quarter: 2010Q1

REPORT INFORMATION
  Report Type: 
  Country: None (occurrence: None)
  Receive Date: 20100316
  Receipt Date: 20100305
  Transmission Date: 20100710
  Serious: Yes (Hospitalization)
  Sender: FDA-Public Use
  Company Number: JP-ROCHE-690861

PATIENT
  Sex: Female
  Weight: 60 kg

DRUGS (17)
  1. ACTEMRA [Suspect]
     Indication: RHEUMATOID ARTHRITIS
     Route: 041
     Dates: start: 20080804, end: 20080804
  2. ACTEMRA [Suspect]
     Route: 041
     Dates: start: 20080901, end: 20080901
  3. ACTEMRA [Suspect]
     Route: 041
     Dates: start: 20080929, end: 20080929
  4. ACTEMRA [Suspect]
     Route: 041
     Dates: start: 20081027, end: 20081027
  5. ACTEMRA [Suspect]
     Route: 041
     Dates: start: 20081125, end: 20081125
  6. ACTEMRA [Suspect]
     Route: 041
     Dates: start: 20081224, end: 20081224
  7. ACTEMRA [Suspect]
     Route: 041
     Dates: start: 20090122
  8. RHEUMATREX [Suspect]
     Indication: RHEUMATOID ARTHRITIS
     Route: 048
  9. ISCOTIN [Concomitant]
     Dosage: DOSE FORM: PERORAL AGENT
     Route: 048
  10. PREDNISOLONE [Concomitant]
     Dosage: DOSE FORM: PERORAL AGENT
     Route: 048
  11. TAKEPRON [Concomitant]
     Dosage: DOSE FORM: PERORAL AGENT
     Route: 048
  12. LOXONIN [Concomitant]
     Dosage: DRUG: LOXOPROFEN SODIUM
     Route: 048
  13. FOLIAMIN [Concomitant]
     Dosage: DOSE FORM: PERORAL AGENT
     Route: 048
  14. LIPITOR [Concomitant]
     Dosage: DRUG:ATORVASTATIN CALCIUM
     Route: 048
  15. BONALON [Concomitant]
     Dosage: DRUG: BONALON 35MG(ALENDRONATE SODIUM HYDRATE)
     Route: 048
  16. MOHRUS [Concomitant]
     Dosage: MOHRUS TAPE L(KETOPROFEN), TAPE: TAPE
     Route: 061
  17. ALFAROL [Concomitant]
     Dosage: DRUG: ALFAROL CAPSULES(ALFACALCIDOL), DOSE FORM: PERORAL AGENT
     Route: 048

REACTIONS (1)
  - INTERSTITIAL LUNG DISEASE [None]
